FAERS Safety Report 16554834 (Version 1)
Quarter: 2019Q3

REPORT INFORMATION
  Report Type: Spontaneous
  Country: US (occurrence: US)
  Receive Date: 20190710
  Receipt Date: 20190710
  Transmission Date: 20191004
  Serious: Yes (Other)
  Sender: FDA-Public Use
  Company Number: US-RENAISSANCE SSA, LLC-2019REN000167

PATIENT

DRUGS (11)
  1. PENTOBARBITAL. [Suspect]
     Active Substance: PENTOBARBITAL
     Dosage: 10 MG/KG, ONCE
     Route: 040
  2. ROCURONIUM [Concomitant]
     Active Substance: ROCURONIUM BROMIDE
     Indication: INTRACRANIAL PRESSURE INCREASED
     Dosage: 100 MG, UNK
     Route: 040
  3. KETAMINE [Concomitant]
     Active Substance: KETAMINE
     Indication: INTRACRANIAL PRESSURE INCREASED
     Dosage: 100 MG, UNK
     Route: 040
  4. NOREPINEPHRINE. [Concomitant]
     Active Substance: NOREPINEPHRINE
     Indication: HYPOTENSION
  5. HYPERTONIC SALINE SOLUTION [Concomitant]
     Active Substance: SODIUM CHLORIDE
     Indication: INTRACRANIAL PRESSURE INCREASED
     Dosage: 120 MEQ, UNK
     Route: 040
  6. CEFEPIME [Concomitant]
     Active Substance: CEFEPIME HYDROCHLORIDE
     Indication: SEPTIC SHOCK
  7. VANCOMYCIN [Concomitant]
     Active Substance: VANCOMYCIN
     Indication: SEPTIC SHOCK
  8. VASOPRESSIN. [Concomitant]
     Active Substance: VASOPRESSIN
     Indication: HYPOTENSION
  9. PENTOBARBITAL. [Suspect]
     Active Substance: PENTOBARBITAL
     Indication: INTRACRANIAL PRESSURE INCREASED
     Dosage: 5 MG/KG/H
     Route: 042
  10. PENTOBARBITAL. [Suspect]
     Active Substance: PENTOBARBITAL
     Dosage: 2.5 MG/KG/H
     Route: 042
  11. METRONIDAZOLE. [Concomitant]
     Active Substance: METRONIDAZOLE
     Indication: SEPTIC SHOCK

REACTIONS (3)
  - Metabolic acidosis [Recovering/Resolving]
  - Toxicity to various agents [Recovering/Resolving]
  - Acute kidney injury [Recovered/Resolved]
